FAERS Safety Report 4632554-4 (Version None)
Quarter: 2005Q2

REPORT INFORMATION
  Report Type: 
  Country: None (occurrence: None)
  Receive Date: 20050411
  Receipt Date: 20050331
  Transmission Date: 20051028
  Serious: Yes (Life-Threatening, Other)
  Sender: FDA-Public Use
  Company Number: US-MERCK-0504USA00156

PATIENT
  Age: 62 Year
  Sex: Male
  Weight: 77 kg

DRUGS (7)
  1. ZOCOR [Suspect]
     Indication: CORONARY ARTERY ATHEROSCLEROSIS
     Route: 048
     Dates: start: 19990101, end: 20050101
  2. ZOCOR [Suspect]
     Route: 048
     Dates: start: 20050101
  3. CORTISONE [Concomitant]
     Indication: ADRENOCORTICAL INSUFFICIENCY CHRONIC
     Route: 048
     Dates: start: 19960101
  4. METHYLPREDNISOLONE [Concomitant]
     Indication: HYPERSENSITIVITY
     Route: 048
     Dates: start: 19940101
  5. METHYLPREDNISOLONE [Concomitant]
     Indication: GUILLAIN-BARRE SYNDROME
     Route: 048
     Dates: start: 19940101
  6. ACYCLOVIR [Concomitant]
     Indication: HERPES ZOSTER
     Route: 065
     Dates: start: 19940101
  7. DILTIAZEM MALATE [Concomitant]
     Indication: HYPERTENSION
     Route: 048
     Dates: start: 20010101

REACTIONS (3)
  - CONDITION AGGRAVATED [None]
  - GUILLAIN-BARRE SYNDROME [None]
  - HYPERSENSITIVITY [None]
